FAERS Safety Report 4749127-5 (Version None)
Quarter: 2005Q3

REPORT INFORMATION
  Report Type: 
  Country: None (occurrence: None)
  Receive Date: 20050819
  Receipt Date: 20050811
  Transmission Date: 20060218
  Serious: Yes (Hospitalization, Other)
  Sender: FDA-Public Use
  Company Number: PHEH2005US08944

PATIENT
  Age: 72 Year
  Sex: Female

DRUGS (6)
  1. CLOZARIL [Suspect]
     Dosage: UNK, ONCE/SINGLE
     Dates: start: 20050809, end: 20050809
  2. NEURONTIN [Concomitant]
  3. CRESTOR [Concomitant]
  4. VALTREX [Concomitant]
  5. TOPROL-XL [Concomitant]
  6. CELEBREX [Concomitant]

REACTIONS (5)
  - ACCIDENTAL EXPOSURE [None]
  - ANGER [None]
  - HALLUCINATION [None]
  - LOSS OF CONSCIOUSNESS [None]
  - NERVOUS SYSTEM DISORDER [None]
